FAERS Safety Report 6647067-8 (Version None)
Quarter: 2010Q1

REPORT INFORMATION
  Report Type: 
  Country: None (occurrence: None)
  Receive Date: 20100323
  Receipt Date: 20100310
  Transmission Date: 20100710
  Serious: Yes (Hospitalization)
  Sender: FDA-Public Use
  Company Number: PHHY2010TR14567

PATIENT
  Sex: Female

DRUGS (1)
  1. TASIGNA [Suspect]
     Indication: CHRONIC MYELOID LEUKAEMIA
     Dosage: 2X 400 MG DAILY
     Route: 048

REACTIONS (4)
  - ANAEMIA [None]
  - HAEMORRHAGE [None]
  - LEUKOPENIA [None]
  - THROMBOCYTOPENIA [None]
